FAERS Safety Report 17606971 (Version 1)
Quarter: 2020Q1

REPORT INFORMATION
  Report Type: Spontaneous
  Country: None (occurrence: CA)
  Receive Date: 20200331
  Receipt Date: 20200331
  Transmission Date: 20200409
  Serious: Yes (Other)
  Sender: FDA-Public Use
  Company Number: CA-ASCEND THERAPEUTICS US, LLC-2082162

PATIENT
  Age: 38 Year
  Sex: Male

DRUGS (1)
  1. ESTROGEL [Suspect]
     Active Substance: ESTRADIOL
     Indication: TRANSGENDER HORMONAL THERAPY

REACTIONS (2)
  - Pelvic venous thrombosis [Unknown]
  - Testicular germ cell tumour mixed stage III [Unknown]
